FAERS Safety Report 21625965 (Version 1)
Quarter: 2022Q4

REPORT INFORMATION
  Report Type: Spontaneous
  Country: ES (occurrence: ES)
  Receive Date: 20221122
  Receipt Date: 20221122
  Transmission Date: 20230113
  Serious: Yes (Hospitalization, Other)
  Sender: FDA-Public Use
  Company Number: ES-AMGEN-ESPSP2022199502

PATIENT

DRUGS (7)
  1. ADALIMUMAB [Suspect]
     Active Substance: ADALIMUMAB
     Indication: Proctitis ulcerative
     Dosage: UNK
     Route: 065
  2. INFLIXIMAB [Concomitant]
     Active Substance: INFLIXIMAB
     Route: 065
  3. METHOTREXATE [Concomitant]
     Active Substance: METHOTREXATE
  4. GOLIMUMAB [Concomitant]
     Active Substance: GOLIMUMAB
  5. VEDOLIZUMAB [Concomitant]
     Active Substance: VEDOLIZUMAB
  6. USTEKINUMAB [Concomitant]
     Active Substance: USTEKINUMAB
  7. TOFACITINIB [Concomitant]
     Active Substance: TOFACITINIB

REACTIONS (5)
  - Unevaluable event [Unknown]
  - Colon neoplasm [Unknown]
  - Rectal neoplasm [Unknown]
  - Surgery [Unknown]
  - Neoplasm [Unknown]
